FAERS Safety Report 24542893 (Version 1)
Quarter: 2024Q4

REPORT INFORMATION
  Report Type: Spontaneous
  Country: CN (occurrence: CN)
  Receive Date: 20241024
  Receipt Date: 20241024
  Transmission Date: 20250114
  Serious: Yes (Other)
  Sender: NOVARTIS
  Company Number: CN-002147023-NVSC2024CN206722

PATIENT
  Age: 64 Year
  Sex: Male
  Weight: 65 kg

DRUGS (1)
  1. SECUKINUMAB [Suspect]
     Active Substance: SECUKINUMAB
     Indication: Psoriasis
     Dosage: 10.000 MG, Q2W (ONCE IN 14 DAYS)
     Route: 058
     Dates: start: 20220601, end: 20240919

REACTIONS (3)
  - Colitis ulcerative [Unknown]
  - Eosinophil count increased [Unknown]
  - Gastroenteritis eosinophilic [Unknown]

NARRATIVE: CASE EVENT DATE: 20230101
